FAERS Safety Report 5384984-3 (Version None)
Quarter: 2007Q3

REPORT INFORMATION
  Report Type: 
  Country: None (occurrence: None)
  Receive Date: 20070709
  Receipt Date: 20070417
  Transmission Date: 20080115
  Serious: Yes (Other)
  Sender: FDA-Public Use
  Company Number: US-JNJFOC-20070405555

PATIENT
  Age: 9 Month
  Sex: Male
  Weight: 8.3915 kg

DRUGS (3)
  1. MOTRIN [Suspect]
     Indication: PYREXIA
     Dosage: 50 MG, 1 IN 6 HOUR, ORAL
     Route: 048
     Dates: start: 20070416, end: 20070417
  2. MOTRIN [Suspect]
     Indication: RASH
     Dosage: 50 MG, 1 IN 6 HOUR, ORAL
     Route: 048
     Dates: start: 20070416, end: 20070417
  3. ACETAMINOPHEN [Concomitant]

REACTIONS (2)
  - RASH [None]
  - WHEEZING [None]
